FAERS Safety Report 8006182 (Version 2)
Quarter: 2013Q2

REPORT INFORMATION
  Report Type: Spontaneous
  Country: US (occurrence: None)
  Receive Date: 20110524
  Receipt Date: 20120621
  Transmission Date: 20140414
  Serious: Yes (Other)
  Sender: FDA-Public Use
  Company Number: 029998

PATIENT
  Sex: Female
  Weight: 49.9 kg

DRUGS (5)
  1. CIMZIA [Suspect]
     Indication: CROHN^S DISEASE
     Dosage: 400 MG, INDUCTION DOSE, 400 MG/ FREQUENCY: INITIAL-3 SUBCUTANEOUS
     Route: 058
     Dates: start: 20110222, end: 20110527
  2. DROSPIRENONE W/ETHINYLESTRADIOL [Concomitant]
  3. FOLIC ACID [Concomitant]
  4. MVI [Concomitant]
  5. AMOXICILLIN [Concomitant]

REACTIONS (12)
  - MALAISE [None]
  - DIZZINESS [None]
  - ASTHENIA [None]
  - NAUSEA [None]
  - Feeling drunk [None]
  - Influenza [None]
  - Constipation [None]
  - Haematochezia [None]
  - Abdominal pain [None]
  - Arthralgia [None]
  - Dyspnoea [None]
  - Urticaria [None]
